FAERS Safety Report 7798014-7 (Version None)
Quarter: 2011Q4

REPORT INFORMATION
  Report Type: 
  Country: None (occurrence: None)
  Receive Date: 20111004
  Receipt Date: 20111004
  Transmission Date: 20120403
  Serious: Yes (Other)
  Sender: FDA-Public Use
  Company Number: None

PATIENT
  Age: 86 Year
  Sex: Male
  Weight: 87.9 kg

DRUGS (2)
  1. ZOLEDRONIC ACID [Suspect]
     Indication: OSTEOPENIA
     Dosage: 3.5 MG ONCE IV
     Route: 042
     Dates: start: 20060816, end: 20110708
  2. ZOLEDRONIC ACID [Suspect]
     Indication: OSTEOPENIA
     Dosage: 3.5 MG ONCE IV
     Route: 042
     Dates: start: 20060816, end: 20110708

REACTIONS (1)
  - OSTEONECROSIS OF JAW [None]
